FAERS Safety Report 7215114-0 (Version None)
Quarter: 2011Q1

REPORT INFORMATION
  Report Type: 
  Country: None (occurrence: None)
  Receive Date: 20110107
  Receipt Date: 20100826
  Transmission Date: 20110831
  Serious: No
  Sender: FDA-Public Use
  Company Number: A0877891A

PATIENT
  Age: 64 Year
  Sex: Female

DRUGS (2)
  1. VITAMIN B [Concomitant]
  2. LOVAZA [Suspect]
     Indication: BLOOD CHOLESTEROL INCREASED
     Dosage: 4MG PER DAY
     Route: 048
     Dates: start: 20090101

REACTIONS (5)
  - HAEMORRHAGE URINARY TRACT [None]
  - RASH [None]
  - DRY SKIN [None]
  - RASH PRURITIC [None]
  - PHOTODERMATOSIS [None]
